FAERS Safety Report 18971193 (Version 1)
Quarter: 2021Q1

REPORT INFORMATION
  Report Type: Spontaneous
  Country: US (occurrence: US)
  Receive Date: 20210305
  Receipt Date: 20210305
  Transmission Date: 20210420
  Serious: Yes (Other)
  Sender: FDA-Public Use
  Company Number: US-TEIKOKU PHARMA USA-TPU2021-00258

PATIENT
  Sex: Male
  Weight: 122.58 kg

DRUGS (5)
  1. LIDOCAINE PATCH [Suspect]
     Active Substance: LIDOCAINE
     Indication: ARTHRALGIA
  2. CHOLESTEROL MEDICATION [Concomitant]
     Active Substance: UNSPECIFIED INGREDIENT
  3. BLOOD PRESSURE MEDICAITON [Concomitant]
  4. LIDOCAINE PATCH [Suspect]
     Active Substance: LIDOCAINE
     Indication: NECK PAIN
  5. LIDOCAINE PATCH [Suspect]
     Active Substance: LIDOCAINE
     Indication: BACK PAIN
     Route: 061

REACTIONS (2)
  - Spinal operation [Unknown]
  - Hip arthroplasty [Unknown]
